FAERS Safety Report 14357350 (Version 2)
Quarter: 2018Q1

REPORT INFORMATION
  Report Type: Report from Study
  Country: US (occurrence: US)
  Receive Date: 20180105
  Receipt Date: 20180125
  Transmission Date: 20180509
  Serious: No
  Sender: FDA-Public Use
  Company Number: US-AMGEN-USASL2017180932

PATIENT
  Age: 64 Year
  Sex: Female

DRUGS (1)
  1. REPATHA [Suspect]
     Active Substance: EVOLOCUMAB
     Indication: BLOOD CHOLESTEROL INCREASED
     Dosage: 140 MG, Q2WK
     Route: 065
     Dates: end: 20171214

REACTIONS (14)
  - Headache [Recovering/Resolving]
  - Injection site erythema [Recovering/Resolving]
  - Injection site pain [Recovering/Resolving]
  - Influenza like illness [Recovering/Resolving]
  - Arthralgia [Recovering/Resolving]
  - Hypersensitivity [Recovering/Resolving]
  - Injection site rash [Unknown]
  - Vasodilatation [Recovering/Resolving]
  - Injection site induration [Unknown]
  - Injection site inflammation [Recovering/Resolving]
  - Injection site discolouration [Recovering/Resolving]
  - Injection site mass [Recovering/Resolving]
  - Injection site warmth [Recovering/Resolving]
  - Fatigue [Recovering/Resolving]
